FAERS Safety Report 8601869-7 (Version None)
Quarter: 2012Q3

REPORT INFORMATION
  Report Type: 
  Country: None (occurrence: None)
  Receive Date: 20120817
  Receipt Date: 20120521
  Transmission Date: 20120928
  Serious: No
  Sender: FDA-Public Use
  Company Number: US-BRISTOL-MYERS SQUIBB COMPANY-16587669

PATIENT
  Age: 76 Year
  Sex: Female
  Weight: 83 kg

DRUGS (5)
  1. PLAVIX [Concomitant]
     Indication: CEREBROVASCULAR ACCIDENT
     Dosage: STOPPED ON 23-APR-2012 AND RESTARTED ON 15-MAY-2012.
  2. TRIAMTERENE AND HYDROCHLOROTHIAZIDE [Concomitant]
     Indication: FLUID RETENTION
     Dosage: 1DF:75/50MG
  3. PLAQUENIL [Concomitant]
     Indication: SYSTEMIC LUPUS ERYTHEMATOSUS
  4. POTASSIUM [Concomitant]
     Indication: SUPPLEMENTATION THERAPY
  5. SPRYCEL [Suspect]
     Indication: CHRONIC MYELOID LEUKAEMIA
     Dates: start: 20120425

REACTIONS (1)
  - OEDEMA PERIPHERAL [None]
